FAERS Safety Report 8282507-2 (Version None)
Quarter: 2012Q2

REPORT INFORMATION
  Report Type: 
  Country: None (occurrence: None)
  Receive Date: 20120413
  Receipt Date: 20120409
  Transmission Date: 20120825
  Serious: Yes (Other)
  Sender: FDA-Public Use
  Company Number: US-PFIZER INC-2012053102

PATIENT
  Sex: Male
  Weight: 74.83 kg

DRUGS (6)
  1. LIPITOR [Suspect]
     Indication: BLOOD CHOLESTEROL INCREASED
     Dosage: CUTTING 80MG TO TAKE 40MG, 1X/DAY
     Route: 048
     Dates: end: 20120127
  2. LIPITOR [Suspect]
     Dosage: 80 MG, UNK
  3. METFORMIN [Concomitant]
     Dosage: UNK
  4. LISINOPRIL [Concomitant]
     Dosage: UNK
  5. ATORVASTATIN CALCIUM [Suspect]
     Indication: BLOOD CHOLESTEROL INCREASED
     Dosage: CUTTING 80MG TO TAKE 40MG, 1X/DAY
     Route: 048
     Dates: start: 20120127, end: 20120227
  6. ATORVASTATIN CALCIUM [Suspect]
     Dosage: UNK

REACTIONS (4)
  - PRURITUS [None]
  - ERYTHEMA [None]
  - CEREBROVASCULAR ACCIDENT [None]
  - DYSSTASIA [None]
